FAERS Safety Report 9095844 (Version 4)
Quarter: 2013Q1

REPORT INFORMATION
  Report Type: Spontaneous
  Country: ZA (occurrence: ZA)
  Receive Date: 20130219
  Receipt Date: 20130322
  Transmission Date: 20140127
  Serious: Yes (Death, Other)
  Sender: FDA-Public Use
  Company Number: ZA-ABBOTT-13P-143-1050196-00

PATIENT
  Sex: Female

DRUGS (2)
  1. HUMIRA [Suspect]
     Indication: RHEUMATOID ARTHRITIS
     Route: 058
     Dates: start: 2010
  2. HUMIRA [Suspect]
     Indication: CROHN^S DISEASE

REACTIONS (4)
  - Myocardial infarction [Fatal]
  - Systemic sclerosis [Fatal]
  - Pneumonia [Unknown]
  - Lung disorder [Unknown]
